FAERS Safety Report 7037133-X (Version None)
Quarter: 2010Q4

REPORT INFORMATION
  Report Type: 
  Country: None (occurrence: None)
  Receive Date: 20101011
  Receipt Date: 20100927
  Transmission Date: 20110411
  Serious: No
  Sender: FDA-Public Use
  Company Number: FR-ELI_LILLY_AND_COMPANY-FR201009001343

PATIENT
  Age: 84 Year
  Sex: Female
  Weight: 48 kg

DRUGS (4)
  1. FORTEO [Suspect]
     Indication: OSTEOPOROSIS
     Dosage: 20 UG, DAILY (1/D)
     Route: 058
     Dates: start: 20100630
  2. PRESERVISION LUTEIN EYE VITA.+MIN.SUP.SOFTG. [Concomitant]
     Indication: MACULAR DEGENERATION
     Dosage: UNK, UNK
     Route: 048
  3. SOTALOL [Concomitant]
     Indication: TACHYCARDIA
     Dosage: 80 MG, DAILY (1/D)
     Route: 048
  4. VASTAREL [Concomitant]
     Dosage: 35 MG, DAILY (1/D)
     Route: 048

REACTIONS (1)
  - NO ADVERSE EVENT [None]
